FAERS Safety Report 4285304-8 (Version None)
Quarter: 2004Q1

REPORT INFORMATION
  Report Type: 
  Country: None (occurrence: None)
  Receive Date: 20040204
  Receipt Date: 20031105
  Transmission Date: 20041129
  Serious: Yes (Other)
  Sender: FDA-Public Use
  Company Number: PHFR2003IE04327

PATIENT
  Age: 42 Year
  Sex: Female

DRUGS (2)
  1. CLOZARIL [Suspect]
     Indication: SCHIZOPHRENIA
     Dosage: 250MG/DAY
     Route: 048
     Dates: start: 20020121
  2. CLOZARIL [Suspect]
     Dosage: 300MG/DAY
     Route: 048
     Dates: start: 20030901

REACTIONS (6)
  - ASTHENIA [None]
  - CONVULSION [None]
  - DIZZINESS [None]
  - ENCEPHALOPATHY [None]
  - FALL [None]
  - MUSCLE SPASMS [None]
